FAERS Safety Report 9627487 (Version 3)
Quarter: 2014Q2

REPORT INFORMATION
  Report Type: Spontaneous
  Country: US (occurrence: US)
  Receive Date: 20131016
  Receipt Date: 20140424
  Transmission Date: 20141212
  Serious: Yes (Other)
  Sender: FDA-Public Use
  Company Number: US-LUNDBECK-DKLU1088797

PATIENT
  Sex: Male
  Weight: 21 kg

DRUGS (10)
  1. SABRIL (FOR ORAL SOLUTION) [Suspect]
     Indication: TUBEROUS SCLEROSIS
     Dosage: 3 PACKETS
     Dates: start: 20091201
  2. SABRIL (FOR ORAL SOLUTION) [Suspect]
     Indication: INFANTILE SPASMS
  3. SABRIL     (TABLET) [Suspect]
     Indication: TUBEROUS SCLEROSIS
     Route: 048
     Dates: start: 20091201
  4. SABRIL     (TABLET) [Suspect]
     Indication: INFANTILE SPASMS
     Route: 048
     Dates: start: 201302
  5. SABRIL     (TABLET) [Suspect]
     Route: 048
     Dates: start: 20140408
  6. LEVETIRACETAM [Concomitant]
     Indication: INFANTILE SPASMS
     Dates: start: 2009
  7. KEPPRA [Concomitant]
     Indication: INFANTILE SPASMS
  8. STEROIDS [Concomitant]
     Indication: INFANTILE SPASMS
  9. ZONISAMIDE [Concomitant]
     Indication: CONVULSION
  10. TRILEPTAL [Concomitant]
     Indication: CONVULSION

REACTIONS (2)
  - Convulsion [Recovering/Resolving]
  - Drug dose omission [Unknown]
